FAERS Safety Report 23369157 (Version 2)
Quarter: 2024Q1

REPORT INFORMATION
  Report Type: Spontaneous
  Country: PT (occurrence: PT)
  Receive Date: 20240105
  Receipt Date: 20240116
  Transmission Date: 20240410
  Serious: Yes (Hospitalization, Other)
  Sender: FDA-Public Use
  Company Number: PT-MACLEODS PHARMACEUTICALS US LTD-MAC2023045157

PATIENT

DRUGS (3)
  1. QUETIAPINE [Suspect]
     Active Substance: QUETIAPINE
     Indication: Product used for unknown indication
     Dosage: 60 DOSAGE FORM, SINGE 3 GRAM, 50 MG PILLS 3G TOTAL DOSAGE
     Route: 065
  2. TRAZODONE [Concomitant]
     Active Substance: TRAZODONE HYDROCHLORIDE
     Indication: Persistent depressive disorder
     Dosage: 150 MILLIGRAM, QD (150MG EXTENDED-RELEASE DAILY)
     Route: 065
  3. ETHYL LOFLAZEPATE [Concomitant]
     Active Substance: ETHYL LOFLAZEPATE
     Indication: Persistent depressive disorder
     Dosage: 2 MILLIGRAM, QD
     Route: 065

REACTIONS (4)
  - Ectopic atrial rhythm [Recovered/Resolved]
  - Suicide attempt [Unknown]
  - Intentional overdose [Recovered/Resolved]
  - Electrocardiogram QT prolonged [Recovered/Resolved]
